FAERS Safety Report 19940735 (Version 1)
Quarter: 2021Q4

REPORT INFORMATION
  Report Type: Spontaneous
  Country: FR (occurrence: FR)
  Receive Date: 20211011
  Receipt Date: 20211011
  Transmission Date: 20220303
  Serious: Yes (Other)
  Sender: FDA-Public Use
  Company Number: FR-SA-2021SA172186

PATIENT
  Age: 48 Year
  Sex: Female
  Weight: 42 kg

DRUGS (5)
  1. TENOFOVIR DISOPROXIL [Suspect]
     Active Substance: TENOFOVIR DISOPROXIL
     Indication: HIV infection
     Dosage: UNK
     Dates: start: 200108
  2. LOPINAVIR\RITONAVIR [Suspect]
     Active Substance: LOPINAVIR\RITONAVIR
     Indication: HIV infection
     Dosage: UNK
     Dates: start: 200108
  3. EFAVIRENZ [Concomitant]
     Active Substance: EFAVIRENZ
     Indication: HIV infection
     Dosage: UNK
     Dates: start: 200108
  4. PRAVASTATIN [Concomitant]
     Active Substance: PRAVASTATIN
     Indication: Dyslipidaemia
     Dosage: UNK
  5. LAMIVUDINE [Concomitant]
     Active Substance: LAMIVUDINE
     Indication: HIV infection
     Dosage: UNK
     Dates: start: 200108

REACTIONS (10)
  - Proteinuria [Unknown]
  - Nephropathy toxic [Recovered/Resolved]
  - Renal glycosuria [Recovered/Resolved]
  - Creatinine renal clearance decreased [Unknown]
  - Hypophosphataemia [Recovered/Resolved]
  - Renal tubular dysfunction [Recovered/Resolved]
  - Argininosuccinate synthetase deficiency [Recovered/Resolved]
  - Paraesthesia [Recovered/Resolved]
  - Acquired aminoaciduria [Unknown]
  - Myalgia [Recovered/Resolved]

NARRATIVE: CASE EVENT DATE: 20020101
